FAERS Safety Report 23990671 (Version 1)
Quarter: 2024Q2

REPORT INFORMATION
  Report Type: Spontaneous
  Country: JP (occurrence: JP)
  Receive Date: 20240619
  Receipt Date: 20240619
  Transmission Date: 20240715
  Serious: Yes (Other)
  Sender: FDA-Public Use
  Company Number: JP-SERVIER-S24007273

PATIENT
  Age: 75 Year
  Sex: Female

DRUGS (3)
  1. ONIVYDE [Suspect]
     Active Substance: IRINOTECAN HYDROCHLORIDE
     Indication: Pancreatic carcinoma
     Dosage: UNK
     Route: 065
  2. FLUOROURACIL [Suspect]
     Active Substance: FLUOROURACIL
     Indication: Pancreatic carcinoma
     Dosage: UNK
     Route: 065
  3. LEVOLEUCOVORIN CALCIUM [Suspect]
     Active Substance: LEVOLEUCOVORIN CALCIUM
     Indication: Pancreatic carcinoma
     Dosage: UNK
     Route: 065

REACTIONS (3)
  - Cholangitis [Recovering/Resolving]
  - Obstructive pancreatitis [Recovering/Resolving]
  - Enterocolitis [Unknown]
